FAERS Safety Report 20749700 (Version 3)
Quarter: 2022Q2

REPORT INFORMATION
  Report Type: Report from Study
  Country: CA (occurrence: CA)
  Receive Date: 20220426
  Receipt Date: 20220520
  Transmission Date: 20220721
  Serious: Yes (Hospitalization, Other)
  Sender: FDA-Public Use
  Company Number: CA-GLAXOSMITHKLINE-CA2022068651

PATIENT

DRUGS (2)
  1. MEPOLIZUMAB [Suspect]
     Active Substance: MEPOLIZUMAB
     Indication: Hypereosinophilic syndrome
     Dosage: 300 MG, Z, EVERY 4 WEEKS
     Route: 058
     Dates: start: 20211230
  2. PREDNISONE [Concomitant]
     Active Substance: PREDNISONE
     Indication: Product used for unknown indication
     Dosage: UNK

REACTIONS (13)
  - Cerebrovascular accident [Unknown]
  - Transient ischaemic attack [Recovered/Resolved]
  - COVID-19 [Unknown]
  - Incontinence [Unknown]
  - Somnolence [Unknown]
  - Decreased appetite [Unknown]
  - Confusional state [Unknown]
  - Increased bronchial secretion [Unknown]
  - General physical health deterioration [Unknown]
  - Malaise [Unknown]
  - Hemiparaesthesia [Recovered/Resolved]
  - Asthenia [Recovered/Resolved]
  - Dysarthria [Recovered/Resolved]

NARRATIVE: CASE EVENT DATE: 20220401
